FAERS Safety Report 7748206-8 (Version None)
Quarter: 2011Q3

REPORT INFORMATION
  Report Type: 
  Country: None (occurrence: None)
  Receive Date: 20110913
  Receipt Date: 20110711
  Transmission Date: 20111222
  Serious: No
  Sender: FDA-Public Use
  Company Number: US-ELI_LILLY_AND_COMPANY-US201107003200

PATIENT
  Age: 58 Year
  Sex: Female

DRUGS (6)
  1. CYMBALTA [Suspect]
     Indication: MAJOR DEPRESSION
     Dosage: 60 MG, QD
     Route: 048
     Dates: end: 20110701
  2. METHOTREXATE [Concomitant]
  3. WELLBUTRIN [Concomitant]
  4. IMURAN [Concomitant]
  5. XANAX                                   /USA/ [Concomitant]
  6. RITALIN [Concomitant]

REACTIONS (1)
  - OCULAR ICTERUS [None]
